FAERS Safety Report 4465195-2 (Version None)
Quarter: 2004Q4

REPORT INFORMATION
  Report Type: 
  Country: None (occurrence: None)
  Receive Date: 20041004
  Receipt Date: 20040902
  Transmission Date: 20050328
  Serious: Yes (Hospitalization)
  Sender: FDA-Public Use
  Company Number: SK-ABBOTT-04P-260-0272616-00

PATIENT
  Age: 48 Year
  Sex: Female
  Weight: 88 kg

DRUGS (9)
  1. MERIDIA [Suspect]
     Indication: OBESITY
     Route: 048
     Dates: start: 20040710, end: 20040807
  2. PIRACETAM [Concomitant]
     Indication: DRUG USE FOR UNKNOWN INDICATION
  3. D3 DARROW'S SOLUTION [Concomitant]
     Indication: DRUG USE FOR UNKNOWN INDICATION
  4. THIETHYLPERAZINE MALEATE [Concomitant]
     Indication: DRUG USE FOR UNKNOWN INDICATION
  5. FUROSEMIDE [Concomitant]
     Indication: DRUG USE FOR UNKNOWN INDICATION
  6. POTASSIUM CHLORIDE [Concomitant]
     Indication: DRUG USE FOR UNKNOWN INDICATION
  7. MANNITOL [Concomitant]
     Indication: DRUG USE FOR UNKNOWN INDICATION
  8. AMOXICILLIN [Concomitant]
     Indication: DRUG USE FOR UNKNOWN INDICATION
  9. PARACETAMOL [Concomitant]
     Indication: DRUG USE FOR UNKNOWN INDICATION

REACTIONS (6)
  - DEPRESSED LEVEL OF CONSCIOUSNESS [None]
  - DYSPNOEA [None]
  - FALL [None]
  - SYNCOPE [None]
  - TOXIC INDUCED ENCEPHALOPATHY [None]
  - TRISMUS [None]
